FAERS Safety Report 5142600-X (Version None)
Quarter: 2006Q4

REPORT INFORMATION
  Report Type: 
  Country: None (occurrence: None)
  Receive Date: 20061027
  Receipt Date: 20061016
  Transmission Date: 20070319
  Serious: Yes (Hospitalization)
  Sender: FDA-Public Use
  Company Number: T200601186

PATIENT
  Age: 19 Year
  Sex: Male

DRUGS (2)
  1. OPTIRAY 300 [Suspect]
     Indication: HEADACHE
     Dosage: 100 ML, SINGLE, INTRAVENOUS
     Route: 042
     Dates: start: 20061013, end: 20061013
  2. OPTIRAY 300 [Suspect]
     Indication: SCAN BRAIN
     Dosage: 100 ML, SINGLE, INTRAVENOUS
     Route: 042
     Dates: start: 20061013, end: 20061013

REACTIONS (9)
  - DYSPNOEA [None]
  - ERYTHEMA [None]
  - NASAL CONGESTION [None]
  - OEDEMA [None]
  - PHARYNGEAL OEDEMA [None]
  - PRURITUS [None]
  - RASH [None]
  - SHOCK [None]
  - SWELLING FACE [None]
